FAERS Safety Report 9029126 (Version 2)
Quarter: 2013Q1

REPORT INFORMATION
  Report Type: Spontaneous
  Country: US (occurrence: US)
  Receive Date: 20130124
  Receipt Date: 20130213
  Transmission Date: 20140127
  Serious: Yes (Death)
  Sender: FDA-Public Use
  Company Number: US-TEVA-382076USA

PATIENT
  Age: 57 Year
  Sex: Male

DRUGS (8)
  1. FENTORA [Suspect]
     Indication: BREAKTHROUGH PAIN
     Route: 002
     Dates: start: 20130109
  2. SPIRIVA [Concomitant]
     Indication: CHRONIC OBSTRUCTIVE PULMONARY DISEASE
  3. VENTOLIN [Concomitant]
     Indication: CHRONIC OBSTRUCTIVE PULMONARY DISEASE
  4. SYMBICORT [Concomitant]
     Indication: CHRONIC OBSTRUCTIVE PULMONARY DISEASE
  5. OXYCODONE [Concomitant]
     Indication: PAIN
  6. FENTANYL [Concomitant]
     Indication: PAIN
     Dosage: 100 MCG/HR
     Route: 062
  7. METHADONE [Concomitant]
     Indication: PAIN
     Dosage: 6 TABLET DAILY;
     Route: 048
  8. MORPHINE SULFATE [Concomitant]
     Indication: PAIN
     Route: 048

REACTIONS (1)
  - Neoplasm malignant [Fatal]
